FAERS Safety Report 8439766-2 (Version None)
Quarter: 2012Q2

REPORT INFORMATION
  Report Type: 
  Country: None (occurrence: None)
  Receive Date: 20120615
  Receipt Date: 20120604
  Transmission Date: 20120825
  Serious: Yes (Other)
  Sender: FDA-Public Use
  Company Number: HR-SANOFI-AVENTIS-2012SA040000

PATIENT
  Age: 62 Year
  Sex: Male

DRUGS (9)
  1. MULTAQ [Suspect]
     Indication: CARDIOMYOPATHY
     Route: 048
     Dates: start: 20120425
  2. LOSARTAN POTASSIUM [Concomitant]
     Dosage: 50 MG LOSARTANE +12/5 MG HYDROCHLOROTHIAZIDE
  3. L-CARNITINE [Concomitant]
     Dosage: 1 PER DAY
  4. FUROSEMIDE [Concomitant]
     Dosage: 1 TAB IN THE MORNING WITH HALF TABL KALIUM AND 1 TAB IN THE AFTERNOON
  5. ASPIRIN [Concomitant]
  6. ENOXAPARIN SODIUM [Concomitant]
     Dosage: VIAL
     Route: 058
  7. LANITOP [Concomitant]
  8. SELENIUM [Concomitant]
     Dosage: 2 PER DAY
  9. KALIUM [Concomitant]

REACTIONS (1)
  - MEDICATION ERROR [None]
